FAERS Safety Report 9129229 (Version 1)
Quarter: 2013Q1

REPORT INFORMATION
  Report Type: Spontaneous
  Country: US (occurrence: US)
  Receive Date: 20130228
  Receipt Date: 20130228
  Transmission Date: 20140127
  Serious: No
  Sender: FDA-Public Use
  Company Number: US-ABBOTT-13P-163-1045408-00

PATIENT
  Age: 59 None
  Sex: Male
  Weight: 102.15 kg

DRUGS (3)
  1. ANDROGEL [Suspect]
     Indication: BLOOD TESTOSTERONE DECREASED
     Dosage: 2 PUMPS
     Route: 061
     Dates: start: 20121101, end: 20130117
  2. INDOCIN [Concomitant]
     Indication: ARTHRITIS
  3. TRAMADOL [Concomitant]
     Indication: ARTHRITIS

REACTIONS (2)
  - Blood testosterone increased [Unknown]
  - Blood cholesterol increased [Unknown]
